FAERS Safety Report 8877410 (Version 1)
Quarter: 2012Q4

REPORT INFORMATION
  Report Type: Spontaneous
  Country: DK (occurrence: None)
  Receive Date: 20121025
  Receipt Date: 20121025
  Transmission Date: 20130627
  Serious: Yes (Other)
  Sender: FDA-Public Use
  Company Number: 2012MA012711

PATIENT
  Age: 50 Year
  Sex: Female

DRUGS (3)
  1. DOXAZOSIN MESYLATE [Suspect]
     Indication: BLOOD PRESSURE
     Dosage: ;UNK;UNK
  2. EPILIM CHRONO [Suspect]
     Dosage: 1500  MG;UNK;PO
     Route: 048
  3. CITALOPRAM [Concomitant]

REACTIONS (2)
  - Drug interaction [None]
  - Epilepsy [None]
